FAERS Safety Report 8768236 (Version 1)
Quarter: 2012Q4

REPORT INFORMATION
  Report Type: Report from Study
  Country: FR (occurrence: FR)
  Receive Date: 20120905
  Receipt Date: 20120905
  Transmission Date: 20130627
  Serious: Yes (Death, Hospitalization)
  Sender: FDA-Public Use
  Company Number: FR-GLAXOSMITHKLINE-B0827530A

PATIENT
  Age: 40 Year
  Sex: Male
  Weight: 60 kg

DRUGS (4)
  1. PAZOPANIB [Suspect]
     Indication: GASTROINTESTINAL STROMAL TUMOUR
     Dosage: 800MG Per day
     Route: 048
     Dates: start: 20120820, end: 20120827
  2. OXYCONTIN [Concomitant]
     Indication: PAIN
     Dates: start: 20120705, end: 20120827
  3. OXYNORM [Concomitant]
     Indication: PAIN
     Dates: start: 20120703, end: 20120827
  4. ALDACTONE [Concomitant]
     Indication: DIURETIC THERAPY
     Dates: start: 20120717, end: 20120827

REACTIONS (3)
  - General physical health deterioration [Fatal]
  - Anaemia [Fatal]
  - Hepatitis [Fatal]
